FAERS Safety Report 22203840 (Version 1)
Quarter: 2023Q2

REPORT INFORMATION
  Report Type: Spontaneous
  Country: RO (occurrence: RO)
  Receive Date: 20230412
  Receipt Date: 20230412
  Transmission Date: 20230722
  Serious: Yes (Other)
  Sender: FDA-Public Use
  Company Number: RO-FreseniusKabi-FK202304526

PATIENT
  Age: 66 Year

DRUGS (2)
  1. GEMCITABINE [Suspect]
     Active Substance: GEMCITABINE
     Indication: Squamous cell carcinoma
     Dosage: 5 CYCLES OF GEMCITABINE-CABOPLATIN POLYCHEMOTHERAPY ARE ADMINISTERED
  2. CARBOPLATIN [Suspect]
     Active Substance: CARBOPLATIN
     Indication: Squamous cell carcinoma
     Dosage: 5 CYCLES OF GEMCITABINE-CABOPLATIN POLYCHEMOTHERAPY ARE ADMINISTERED

REACTIONS (4)
  - Leukopenia [Unknown]
  - Odynophagia [Unknown]
  - Epistaxis [Unknown]
  - Fatigue [Unknown]
